FAERS Safety Report 6470176-3 (Version None)
Quarter: 2009Q4

REPORT INFORMATION
  Report Type: 
  Country: None (occurrence: None)
  Receive Date: 20091203
  Receipt Date: 20071219
  Transmission Date: 20100525
  Serious: Yes (Other)
  Sender: FDA-Public Use
  Company Number: US-ELI_LILLY_AND_COMPANY-US200712004153

PATIENT
  Sex: Female
  Weight: 71.655 kg

DRUGS (8)
  1. BYETTA [Suspect]
     Indication: TYPE 2 DIABETES MELLITUS
     Dosage: 5 UG, 2/D
     Route: 058
     Dates: start: 20050101, end: 20050101
  2. BYETTA [Suspect]
     Dosage: 10 UG, 2/D
     Route: 058
     Dates: start: 20050101
  3. COZAAR [Concomitant]
     Indication: BLOOD PRESSURE
     Dosage: 50 MG, DAILY (1/D)
  4. ZETIA [Concomitant]
     Indication: BLOOD CHOLESTEROL
     Dosage: 10 MG, DAILY (1/D)
  5. SYNTHROID [Concomitant]
     Indication: THYROID DISORDER
     Dosage: 50 UG, DAILY (1/D)
  6. ACTONEL [Concomitant]
     Dosage: UNK, UNKNOWN
  7. VALIUM [Concomitant]
     Indication: INSOMNIA
     Dosage: 5 MG, AS NEEDED
     Dates: start: 20060101
  8. GLIMEPIRIDE [Concomitant]
     Dosage: UNK, UNKNOWN

REACTIONS (4)
  - BLOOD GLUCOSE DECREASED [None]
  - DISORIENTATION [None]
  - INCORRECT DOSE ADMINISTERED [None]
  - LOSS OF CONSCIOUSNESS [None]
